FAERS Safety Report 5833240-5 (Version None)
Quarter: 2008Q3

REPORT INFORMATION
  Report Type: 
  Country: None (occurrence: None)
  Receive Date: 20080722
  Receipt Date: 20070529
  Transmission Date: 20090109
  Serious: Yes (Hospitalization)
  Sender: FDA-Public Use
  Company Number: 2007BI005876

PATIENT
  Age: 63 Year
  Sex: Female

DRUGS (16)
  1. AVONEX [Suspect]
     Indication: MULTIPLE SCLEROSIS
     Dosage: 30 UG;QW;IM
     Route: 030
     Dates: start: 20060822
  2. ETHAMBUTOL HCL [Concomitant]
  3. BIAXIN [Concomitant]
  4. NEURONTIN [Concomitant]
  5. PREDNISONE TAB [Concomitant]
  6. METFORMIN HCL [Concomitant]
  7. MECLIZINE [Concomitant]
  8. CARAFATE [Concomitant]
  9. POTASSIUM CHLORIDE [Concomitant]
  10. GLYBURIDE [Concomitant]
  11. NORVASC [Concomitant]
  12. ADVAIR DISKUS 100/50 [Concomitant]
  13. ALBUTEROL [Concomitant]
  14. CALTRATE [Concomitant]
  15. SPIRONOLACTONE [Concomitant]
  16. MEMANTINE HCL [Concomitant]

REACTIONS (1)
  - SKIN BACTERIAL INFECTION [None]
